FAERS Safety Report 4833398-0 (Version None)
Quarter: 2005Q4

REPORT INFORMATION
  Report Type: 
  Country: None (occurrence: None)
  Receive Date: 20051118
  Receipt Date: 20051107
  Transmission Date: 20060501
  Serious: Yes (Other)
  Sender: FDA-Public Use
  Company Number: USA0509107368

PATIENT
  Age: 8 Year
  Sex: Male
  Weight: 32 kg

DRUGS (2)
  1. STRATTERA [Suspect]
     Indication: ATTENTION DEFICIT/HYPERACTIVITY DISORDER
     Dosage: 25 MG
     Dates: start: 20050616, end: 20051010
  2. ADDERALL 10 [Concomitant]

REACTIONS (2)
  - DIABETES MELLITUS INSULIN-DEPENDENT [None]
  - WEIGHT INCREASED [None]
